FAERS Safety Report 8242955-3 (Version None)
Quarter: 2012Q1

REPORT INFORMATION
  Report Type: 
  Country: None (occurrence: None)
  Receive Date: 20120329
  Receipt Date: 20120329
  Transmission Date: 20120608
  Serious: Yes (Other)
  Sender: FDA-Public Use
  Company Number: None

PATIENT
  Sex: Male
  Weight: 24.04 kg

DRUGS (4)
  1. SINGULAIR [Concomitant]
     Route: 048
  2. ADVAIR HFA 115/21 [Concomitant]
     Route: 048
  3. CONCERTA [Suspect]
     Indication: ATTENTION DEFICIT/HYPERACTIVITY DISORDER
     Dosage: 18 MG
     Route: 048
     Dates: start: 20120320, end: 20120323
  4. MIRALAX [Concomitant]
     Route: 048

REACTIONS (4)
  - URTICARIA [None]
  - PRODUCT QUALITY ISSUE [None]
  - DRUG EFFECT DECREASED [None]
  - SKIN DISCOLOURATION [None]
